FAERS Safety Report 4807729-1 (Version None)
Quarter: 2005Q4

REPORT INFORMATION
  Report Type: 
  Country: None (occurrence: None)
  Receive Date: 20051019
  Receipt Date: 20051004
  Transmission Date: 20060501
  Serious: Yes (Other)
  Sender: FDA-Public Use
  Company Number: 8012640

PATIENT
  Sex: Female

DRUGS (2)
  1. KEPPRA [Suspect]
     Dates: start: 20050101
  2. KEPPRA [Suspect]
     Dosage: 3000 MG 1/D PO
     Route: 048
     Dates: start: 20050901

REACTIONS (3)
  - GASTRIC HAEMORRHAGE [None]
  - INFLUENZA LIKE ILLNESS [None]
  - STOMACH DISCOMFORT [None]
